FAERS Safety Report 7523513-2 (Version None)
Quarter: 2011Q2

REPORT INFORMATION
  Report Type: 
  Country: None (occurrence: None)
  Receive Date: 20110601
  Receipt Date: 20110601
  Transmission Date: 20111010
  Serious: No
  Sender: FDA-Public Use
  Company Number: None

PATIENT
  Age: 59 Year
  Sex: Female
  Weight: 86.1834 kg

DRUGS (1)
  1. ACTONEL [Suspect]
     Indication: BONE LOSS
     Dosage: 35MG 1 QD AM
     Dates: start: 20070501, end: 20090801

REACTIONS (2)
  - MUCOUS STOOLS [None]
  - MUSCULOSKELETAL CHEST PAIN [None]
